FAERS Safety Report 9348319 (Version 1)
Quarter: 2013Q2

REPORT INFORMATION
  Report Type: Spontaneous
  Country: BR (occurrence: BR)
  Receive Date: 20130614
  Receipt Date: 20130614
  Transmission Date: 20140414
  Serious: Yes (Other)
  Sender: FDA-Public Use
  Company Number: BR-PFIZER INC-2013173892

PATIENT
  Age: 58 Year
  Sex: Female

DRUGS (3)
  1. XALATAN [Suspect]
     Indication: GLAUCOMA
     Dosage: 3 UG, ONE DROP IN EACH EYE ONCE A DAY
     Route: 047
     Dates: start: 2008, end: 201305
  2. XALACOM [Suspect]
     Dosage: UNK
     Dates: start: 201305
  3. NEVANAC [Concomitant]
     Dosage: UNK
     Dates: start: 20130517, end: 20130603

REACTIONS (3)
  - Macular hole [Unknown]
  - Visual acuity reduced [Unknown]
  - Cataract [Unknown]
